FAERS Safety Report 11834366 (Version 1)
Quarter: 2015Q4

REPORT INFORMATION
  Report Type: Spontaneous
  Country: US (occurrence: US)
  Receive Date: 20151214
  Receipt Date: 20151214
  Transmission Date: 20160305
  Serious: Yes (Other)
  Sender: FDA-Public Use
  Company Number: US-JNJFOC-20151202200

PATIENT
  Age: 54 Year
  Sex: Male
  Weight: 120 kg

DRUGS (1)
  1. XARELTO [Suspect]
     Active Substance: RIVAROXABAN
     Indication: DEEP VEIN THROMBOSIS
     Route: 048
     Dates: start: 20150921, end: 20151024

REACTIONS (3)
  - Blood urine present [Unknown]
  - Haematochezia [Unknown]
  - Haematospermia [Unknown]

NARRATIVE: CASE EVENT DATE: 2015
